FAERS Safety Report 6661769-9 (Version None)
Quarter: 2010Q1

REPORT INFORMATION
  Report Type: 
  Country: None (occurrence: None)
  Receive Date: 20100331
  Receipt Date: 20090611
  Transmission Date: 20100710
  Serious: Yes (Other)
  Sender: FDA-Public Use
  Company Number: US-BRISTOL-MYERS SQUIBB COMPANY-14662969

PATIENT

DRUGS (6)
  1. ERBITUX [Suspect]
     Indication: BREAST CANCER
  2. GEMCITABINE HCL [Concomitant]
     Indication: BREAST CANCER
  3. OXALIPLATIN [Concomitant]
     Indication: BREAST CANCER
  4. SOLU-MEDROL [Concomitant]
     Indication: PREMEDICATION
  5. BENADRYL [Concomitant]
     Indication: PREMEDICATION
  6. ALBUTEROL [Concomitant]
     Indication: PREMEDICATION

REACTIONS (1)
  - ANAPHYLACTIC REACTION [None]
